FAERS Safety Report 6022734-8 (Version None)
Quarter: 2008Q4

REPORT INFORMATION
  Report Type: 
  Country: None (occurrence: None)
  Receive Date: 20081221
  Receipt Date: 20081221
  Transmission Date: 20090506
  Serious: Yes (Other)
  Sender: FDA-Public Use
  Company Number: None

PATIENT
  Age: 37 Year
  Sex: Female
  Weight: 86.1834 kg

DRUGS (2)
  1. MONISTAT 7 [Suspect]
     Indication: FUNGAL INFECTION
     Dosage: 1 APPLICATOR 2 TIMES A DAY VAG EXTERNAL CREAM AS NEEDED VAG 2 DAYS 1 PER ITEM
     Route: 067
     Dates: start: 20081218, end: 20081219
  2. MONISTAT DAY TRIPLE ACTION OR COMBO PACK ECB [Concomitant]

REACTIONS (3)
  - VULVOVAGINAL BURNING SENSATION [None]
  - VULVOVAGINAL PAIN [None]
  - VULVOVAGINAL PRURITUS [None]
